FAERS Safety Report 6481122-0 (Version None)
Quarter: 2009Q4

REPORT INFORMATION
  Report Type: 
  Country: None (occurrence: None)
  Receive Date: 20091208
  Receipt Date: 20090813
  Transmission Date: 20100525
  Serious: No
  Sender: FDA-Public Use
  Company Number: US-AMGEN-KDL337987

PATIENT
  Sex: Female
  Weight: 64.5 kg

DRUGS (19)
  1. ENBREL [Suspect]
     Indication: POLYARTHRITIS
     Route: 058
     Dates: start: 20070801
  2. LIMBREL [Concomitant]
  3. AMBIEN [Concomitant]
  4. AZMACORT [Concomitant]
  5. CELEXA [Concomitant]
  6. COLACE [Concomitant]
  7. ESTRACE [Concomitant]
  8. FENTANYL [Concomitant]
  9. MIRALAX [Concomitant]
  10. PREVACID [Concomitant]
  11. FISH OIL [Concomitant]
  12. FLEXERIL [Concomitant]
  13. FLONASE [Concomitant]
  14. FOLIC ACID [Concomitant]
  15. FOSAMAX [Concomitant]
  16. LIDODERM [Concomitant]
  17. NORCO [Concomitant]
  18. XANAX [Concomitant]
  19. ZANTAC [Concomitant]

REACTIONS (7)
  - CHROMATURIA [None]
  - FATIGUE [None]
  - FIBROMYALGIA [None]
  - MICTURITION FREQUENCY DECREASED [None]
  - PYREXIA [None]
  - THIRST [None]
  - WEIGHT INCREASED [None]
